FAERS Safety Report 12981800 (Version 1)
Quarter: 2016Q4

REPORT INFORMATION
  Report Type: Report from Study
  Country: US (occurrence: US)
  Receive Date: 20161129
  Receipt Date: 20161129
  Transmission Date: 20170207
  Serious: Yes (Hospitalization)
  Sender: FDA-Public Use
  Company Number: US-BIOGEN-2016BI00322103

PATIENT
  Sex: Female

DRUGS (2)
  1. TYSABRI [Suspect]
     Active Substance: NATALIZUMAB
     Indication: MULTIPLE SCLEROSIS
     Route: 065
     Dates: start: 20050425, end: 20060517
  2. TYSABRI [Suspect]
     Active Substance: NATALIZUMAB
     Route: 065
     Dates: start: 20070111, end: 20151216

REACTIONS (6)
  - Balance disorder [Recovered/Resolved]
  - Fall [Recovered/Resolved]
  - Migraine [Unknown]
  - Asthenia [Recovered/Resolved]
  - Abasia [Recovered/Resolved]
  - Aphasia [Recovered/Resolved]
